FAERS Safety Report 5319266-9 (Version None)
Quarter: 2007Q2

REPORT INFORMATION
  Report Type: 
  Country: None (occurrence: None)
  Receive Date: 20070508
  Receipt Date: 20070426
  Transmission Date: 20071010
  Serious: Yes (Other)
  Sender: FDA-Public Use
  Company Number: US-PFIZER INC-2007035639

PATIENT
  Sex: Female
  Weight: 65.909 kg

DRUGS (11)
  1. CHANTIX [Suspect]
     Indication: SMOKING CESSATION THERAPY
  2. DIFLUCAN [Suspect]
     Indication: FUNGAL INFECTION
  3. NEURONTIN [Concomitant]
  4. ZOLOFT [Concomitant]
  5. XANAX [Concomitant]
  6. MOTRIN [Concomitant]
  7. ADVAIR DISKUS 100/50 [Concomitant]
  8. ADVIL [Concomitant]
  9. BENADRYL [Concomitant]
  10. ANTIDEPRESSANTS [Concomitant]
  11. VALIUM [Concomitant]

REACTIONS (10)
  - ASTHENIA [None]
  - DIARRHOEA [None]
  - FUNGAL INFECTION [None]
  - HEADACHE [None]
  - KIDNEY INFECTION [None]
  - KNEE OPERATION [None]
  - NAUSEA [None]
  - POST PROCEDURAL INFECTION [None]
  - PRESYNCOPE [None]
  - VOMITING [None]
